FAERS Safety Report 10032700 (Version 1)
Quarter: 2014Q1

REPORT INFORMATION
  Report Type: Report from Study
  Country: US (occurrence: US)
  Receive Date: 20140324
  Receipt Date: 20140324
  Transmission Date: 20141002
  Serious: Yes (Life-Threatening)
  Sender: FDA-Public Use
  Company Number: US-BAYER-2014-044463

PATIENT
  Age: 49 Year
  Sex: Male

DRUGS (3)
  1. SORAFENIB (RAF KINASE INHIBITOR) [Suspect]
     Indication: METASTATIC SQUAMOUS CELL CARCINOMA
     Dosage: 2 CYCLES
     Route: 048
  2. LENALIDOMIDE [Suspect]
     Indication: METASTATIC SQUAMOUS CELL CARCINOMA
     Dosage: 2 CYCLES
     Route: 048
  3. WARFARIN [Concomitant]
     Indication: THROMBOSIS PROPHYLAXIS

REACTIONS (1)
  - Pulmonary embolism [Recovered/Resolved]
